FAERS Safety Report 7422089-8 (Version None)
Quarter: 2011Q2

REPORT INFORMATION
  Report Type: 
  Country: None (occurrence: None)
  Receive Date: 20110418
  Receipt Date: 20091016
  Transmission Date: 20111010
  Serious: Yes (Hospitalization, Other)
  Sender: FDA-Public Use
  Company Number: DE-GENENTECH-316846

PATIENT

DRUGS (1)
  1. LUCENTIS [Suspect]
     Indication: MACULAR DEGENERATION
     Route: 031

REACTIONS (7)
  - BONE NEOPLASM MALIGNANT [None]
  - MALIGNANT NEOPLASM OF SPINAL CORD [None]
  - BONE EROSION [None]
  - MALAISE [None]
  - LEUKAEMIA [None]
  - STRESS [None]
  - VISUAL ACUITY REDUCED [None]
